FAERS Safety Report 8321500-8 (Version None)
Quarter: 2012Q2

REPORT INFORMATION
  Report Type: 
  Country: None (occurrence: None)
  Receive Date: 20120430
  Receipt Date: 20120430
  Transmission Date: 20120825
  Serious: Yes (Life-Threatening, Hospitalization, Disabling)
  Sender: FDA-Public Use
  Company Number: None

PATIENT
  Age: 65 Year
  Sex: Male
  Weight: 129.27 kg

DRUGS (1)
  1. ROBINUL [Suspect]
     Indication: INCREASED BRONCHIAL SECRETION
     Dates: start: 20120425, end: 20120425

REACTIONS (4)
  - CHEST PAIN [None]
  - ARRHYTHMIA [None]
  - DYSPNOEA [None]
  - CARDIAC DISORDER [None]
